FAERS Safety Report 4977840-3 (Version None)
Quarter: 2006Q1

REPORT INFORMATION
  Report Type: 
  Country: None (occurrence: None)
  Receive Date: 20060215
  Receipt Date: 20050124
  Transmission Date: 20060701
  Serious: No
  Sender: FDA-Public Use
  Company Number: MC200500086

PATIENT
  Age: 41 Year
  Sex: Female

DRUGS (1)
  1. ANGIOMAX [Suspect]
     Dosage: 0.75 MG/KG, BOLUS, IV BOLUS
     Route: 040

REACTIONS (1)
  - STENT OCCLUSION [None]
